FAERS Safety Report 14689225 (Version 1)
Quarter: 2018Q1

REPORT INFORMATION
  Report Type: Spontaneous
  Country: US (occurrence: US)
  Receive Date: 20180327
  Receipt Date: 20180327
  Transmission Date: 20180509
  Serious: Yes (Hospitalization)
  Sender: FDA-Public Use
  Company Number: None

PATIENT
  Sex: Female

DRUGS (16)
  1. VALACYCLOVIR [Concomitant]
     Active Substance: VALACYCLOVIR HYDROCHLORIDE
  2. RANITIDINE. [Concomitant]
     Active Substance: RANITIDINE
  3. MATULANE [Concomitant]
     Active Substance: PROCARBAZINE HYDROCHLORIDE
  4. FLONASE [Concomitant]
     Active Substance: FLUTICASONE PROPIONATE
  5. ZOCOR [Concomitant]
     Active Substance: SIMVASTATIN
  6. MEGESTROL [Concomitant]
     Active Substance: MEGESTROL
  7. CALCIUM D [Concomitant]
     Active Substance: CALCIUM\VITAMIN D
  8. ASPIRIN. [Concomitant]
     Active Substance: ASPIRIN
  9. SMZ-TMP [Concomitant]
     Active Substance: SULFAMETHOXAZOLE\TRIMETHOPRIM
  10. GINGER ROOT [Concomitant]
     Active Substance: GINGER
  11. PROAIR HFA [Concomitant]
     Active Substance: ALBUTEROL SULFATE
  12. VITAMIN B12 [Concomitant]
     Active Substance: CYANOCOBALAMIN
  13. GLEOSTINE [Suspect]
     Active Substance: LOMUSTINE
     Indication: BRAIN NEOPLASM MALIGNANT
     Route: 048
     Dates: start: 20171028
  14. ZYRTEC [Concomitant]
     Active Substance: CETIRIZINE HYDROCHLORIDE
  15. FLORASTOR [Concomitant]
     Active Substance: SACCHAROMYCES CEREVISIAE
  16. CENTRUM [Concomitant]
     Active Substance: VITAMINS

REACTIONS (4)
  - Dysphemia [None]
  - Nausea [None]
  - Saccadic eye movement [None]
  - Feeling abnormal [None]
